FAERS Safety Report 6214815-0 (Version None)
Quarter: 2009Q2

REPORT INFORMATION
  Report Type: 
  Country: None (occurrence: None)
  Receive Date: 20090604
  Receipt Date: 20090521
  Transmission Date: 20091009
  Serious: Yes (Other)
  Sender: FDA-Public Use
  Company Number: HU-PFIZER INC-2009218327

PATIENT

DRUGS (1)
  1. CARDURA [Suspect]
     Dosage: UNK

REACTIONS (2)
  - ANGIOEDEMA [None]
  - URTICARIA [None]
